FAERS Safety Report 8222008-0 (Version None)
Quarter: 2012Q1

REPORT INFORMATION
  Report Type: 
  Country: None (occurrence: None)
  Receive Date: 20120320
  Receipt Date: 20120312
  Transmission Date: 20120608
  Serious: Yes (Other)
  Sender: FDA-Public Use
  Company Number: IE-US-EMD SERONO, INC.-7093562

PATIENT
  Sex: Female

DRUGS (6)
  1. CLACID (KLACID) [Concomitant]
     Indication: PRODUCT USED FOR UNKNOWN INDICATION
     Route: 048
     Dates: start: 20110901
  2. RIVETREL [Concomitant]
     Indication: SENSATION OF HEAVINESS
     Dates: start: 20110901
  3. REBIF [Suspect]
     Indication: RELAPSING-REMITTING MULTIPLE SCLEROSIS
     Route: 058
     Dates: start: 20051030
  4. REBIF [Suspect]
     Route: 058
  5. ZOLPIDEM TARTRATE [Concomitant]
     Indication: SLEEP DISORDER
     Dates: start: 20111001
  6. PRILOSEC [Concomitant]
     Indication: PRODUCT USED FOR UNKNOWN INDICATION
     Dates: start: 20111201

REACTIONS (7)
  - SPINAL COMPRESSION FRACTURE [None]
  - SINUSITIS [None]
  - GASTRIC ULCER [None]
  - ABDOMINAL PAIN [None]
  - RESPIRATORY TRACT INFECTION [None]
  - INJECTION SITE INDURATION [None]
  - BACK PAIN [None]
